FAERS Safety Report 6401384-5 (Version None)
Quarter: 2009Q4

REPORT INFORMATION
  Report Type: 
  Country: None (occurrence: None)
  Receive Date: 20091015
  Receipt Date: 20091005
  Transmission Date: 20100525
  Serious: Yes (Other)
  Sender: FDA-Public Use
  Company Number: PHHY2009JP43147

PATIENT
  Age: 2 Year
  Sex: Male

DRUGS (3)
  1. ZADITEN [Suspect]
     Indication: RHINORRHOEA
     Dosage: UNK
     Route: 048
     Dates: start: 20091001, end: 20091001
  2. FLOMOX [Concomitant]
     Dosage: UNK
     Route: 048
     Dates: start: 20091001
  3. CALONAL [Concomitant]
     Dosage: UNK
     Route: 048
     Dates: start: 20091001

REACTIONS (1)
  - CONVULSION [None]
